FAERS Safety Report 8769298 (Version 1)
Quarter: 2012Q4

REPORT INFORMATION
  Report Type: 
  Country: US (occurrence: US)
  Receive Date: 20120905
  Receipt Date: 20120905
  Transmission Date: 20130627
  Serious: Yes (Hospitalization)
  Sender: FDA-Public Use
  Company Number: US-ASTRAZENECA-2012SE64830

PATIENT
  Sex: Female

DRUGS (4)
  1. SEROQUEL [Suspect]
     Route: 048
  2. VIIBRYD [Suspect]
     Route: 048
  3. LATUDA [Suspect]
     Route: 065
  4. ALCOHOL [Suspect]
     Route: 065

REACTIONS (2)
  - Aspiration [Recovered/Resolved]
  - Convulsion [Unknown]
